FAERS Safety Report 16075111 (Version 1)
Quarter: 2019Q1

REPORT INFORMATION
  Report Type: Report from Study
  Country: None (occurrence: US)
  Receive Date: 20190315
  Receipt Date: 20190315
  Transmission Date: 20190418
  Serious: Yes (Other)
  Sender: FDA-Public Use
  Company Number: US-ABBVIE-19S-163-2699920-00

PATIENT
  Age: 91 Year
  Sex: Female

DRUGS (1)
  1. CREON [Suspect]
     Active Substance: PANCRELIPASE AMYLASE\PANCRELIPASE LIPASE\PANCRELIPASE PROTEASE
     Indication: PRODUCT USED FOR UNKNOWN INDICATION
     Route: 048

REACTIONS (29)
  - Colectomy [Unknown]
  - Type V hyperlipidaemia [Unknown]
  - Pain [Unknown]
  - Ureteral stent removal [Unknown]
  - Hypothyroidism [Unknown]
  - Chronic gastritis [Unknown]
  - Oesophagogastric fundoplasty [Unknown]
  - Coronary artery disease [Unknown]
  - Osteopenia [Unknown]
  - Herpes zoster oticus [Unknown]
  - Colitis microscopic [Unknown]
  - Coronary artery disease [Unknown]
  - Colitis microscopic [Unknown]
  - Abdominal pain [Unknown]
  - Pain [Unknown]
  - Blepharospasm [Unknown]
  - Insomnia [Unknown]
  - Osteopenia [Unknown]
  - Diverticulitis [Unknown]
  - Gastritis [Unknown]
  - Diarrhoea [Unknown]
  - Pulmonary embolism [Unknown]
  - Ureteral stent insertion [Unknown]
  - Hysterectomy [Unknown]
  - Cricopharyngeal myotomy [Unknown]
  - Gastrooesophageal reflux disease [Unknown]
  - Major depression [Recovered/Resolved]
  - Diverticulitis [Unknown]
  - Aphonia [Unknown]

NARRATIVE: CASE EVENT DATE: 1965
